FAERS Safety Report 4469813-4 (Version None)
Quarter: 2004Q4

REPORT INFORMATION
  Report Type: 
  Country: None (occurrence: None)
  Receive Date: 20041008
  Receipt Date: 20040903
  Transmission Date: 20050328
  Serious: Yes (Other)
  Sender: FDA-Public Use
  Company Number: JP-GLAXOSMITHKLINE-B0344954A

PATIENT
  Age: 28 Year
  Sex: Female

DRUGS (2)
  1. VALTREX [Suspect]
     Indication: HERPES ZOSTER
     Dosage: 1000MG THREE TIMES PER DAY
     Route: 048
     Dates: start: 20040824, end: 20040829
  2. LAMISIL [Suspect]
     Indication: NAIL TINEA
     Dosage: 125MG PER DAY
     Route: 048
     Dates: start: 20040522, end: 20040824

REACTIONS (5)
  - ERYTHEMA MULTIFORME [None]
  - EXANTHEM [None]
  - PRURITUS GENERALISED [None]
  - PYREXIA [None]
  - RASH [None]
